FAERS Safety Report 9373577 (Version 1)
Quarter: 2013Q2

REPORT INFORMATION
  Report Type: Report from Study
  Country: CA (occurrence: CA)
  Receive Date: 20130627
  Receipt Date: 20130627
  Transmission Date: 20140414
  Serious: Yes (Other)
  Sender: FDA-Public Use
  Company Number: CA-ABBOTT-13P-028-1108243-00

PATIENT
  Sex: Female

DRUGS (1)
  1. HUMIRA [Suspect]
     Indication: RHEUMATOID ARTHRITIS
     Route: 058
     Dates: start: 20080104

REACTIONS (7)
  - Skin lesion [Not Recovered/Not Resolved]
  - Malignant melanoma [Not Recovered/Not Resolved]
  - Haemorrhage [Recovered/Resolved]
  - Skin papilloma [Unknown]
  - Nasopharyngitis [Recovered/Resolved]
  - Inflammation [Recovered/Resolved]
  - Arthritis [Recovered/Resolved]
